FAERS Safety Report 7361749-4 (Version None)
Quarter: 2011Q1

REPORT INFORMATION
  Report Type: 
  Country: None (occurrence: None)
  Receive Date: 20110318
  Receipt Date: 20110309
  Transmission Date: 20110831
  Serious: Yes (Other)
  Sender: FDA-Public Use
  Company Number: JP-MERCK-1103USA01790

PATIENT
  Age: 20 Month
  Sex: Male
  Weight: 10 kg

DRUGS (6)
  1. PEPCID [Suspect]
     Indication: ANAESTHETIC PREMEDICATION
     Route: 048
  2. PEPCID [Suspect]
     Route: 048
  3. SEVOFLURANE [Concomitant]
     Route: 055
  4. PENTAZOCINE [Concomitant]
     Route: 065
  5. MIDAZOLAM [Concomitant]
     Route: 065
  6. REMIFENTANIL HYDROCHLORIDE [Concomitant]
     Route: 065

REACTIONS (2)
  - BODY TEMPERATURE DECREASED [None]
  - BODY TEMPERATURE INCREASED [None]
